FAERS Safety Report 4530167-6 (Version None)
Quarter: 2004Q4

REPORT INFORMATION
  Report Type: 
  Country: None (occurrence: None)
  Receive Date: 20041215
  Receipt Date: 20041112
  Transmission Date: 20050328
  Serious: Yes (Hospitalization)
  Sender: FDA-Public Use
  Company Number: 9321

PATIENT
  Age: 73 Year
  Sex: Male

DRUGS (5)
  1. METHOTREXATE [Suspect]
     Indication: NON-HODGKIN'S LYMPHOMA
     Dosage: 5.4 MG QD; IV
     Route: 042
     Dates: start: 20041027, end: 20041027
  2. TEMOZOLOMIDE [Suspect]
     Indication: NON-HODGKIN'S LYMPHOMA
     Dosage: 250 MG QD;
     Route: 065
     Dates: start: 20041025, end: 20041101
  3. METHYLPREDNISOLONE [Concomitant]
  4. GLICLAZIDE [Concomitant]
  5. FENOFIBRATE [Concomitant]

REACTIONS (5)
  - CHEMOTHERAPEUTIC DRUG LEVEL ABOVE THERAPEUTIC [None]
  - DEHYDRATION [None]
  - DIALYSIS [None]
  - OVERDOSE [None]
  - RENAL FAILURE ACUTE [None]
